FAERS Safety Report 5815100-9 (Version None)
Quarter: 2008Q3

REPORT INFORMATION
  Report Type: 
  Country: None (occurrence: None)
  Receive Date: 20080718
  Receipt Date: 20080714
  Transmission Date: 20090109
  Serious: Yes (Hospitalization, Other)
  Sender: FDA-Public Use
  Company Number: US-MERCK-0807USA02488

PATIENT
  Age: 43 Year
  Sex: Male

DRUGS (1)
  1. INVANZ [Suspect]
     Route: 042

REACTIONS (1)
  - ENTEROCOCCAL INFECTION [None]
